FAERS Safety Report 15982610 (Version 1)
Quarter: 2019Q1

REPORT INFORMATION
  Report Type: Spontaneous
  Country: US (occurrence: US)
  Receive Date: 20190219
  Receipt Date: 20190219
  Transmission Date: 20190418
  Serious: Yes (Other)
  Sender: FDA-Public Use
  Company Number: US-PFIZER INC-2019069111

PATIENT
  Age: 82 Year
  Sex: Female
  Weight: 40.82 kg

DRUGS (8)
  1. ADVIL [Suspect]
     Active Substance: IBUPROFEN
     Dosage: 200 MG, UNK
     Route: 048
     Dates: start: 201811, end: 201811
  2. SYNTHROID [Concomitant]
     Active Substance: LEVOTHYROXINE SODIUM
     Dosage: 88 UG, DAILY (MONDAY- FRIDAY)
     Route: 048
  3. HORSE CHESTNUT EXTRACT [Suspect]
     Active Substance: HORSE CHESTNUT
     Dosage: 300 MG (ONE CAPLET) PER DAY
     Route: 048
     Dates: start: 201812, end: 201812
  4. HORSE CHESTNUT EXTRACT [Suspect]
     Active Substance: HORSE CHESTNUT
     Indication: SUPPLEMENTATION THERAPY
     Dosage: 300 MG (ONE CAPLET), 2X/DAY (MORNING WITH BREAKFAST AND ONE CAPLET IN THE EVENING )
     Route: 048
     Dates: start: 201809, end: 201811
  5. HORSE CHESTNUT EXTRACT [Suspect]
     Active Substance: HORSE CHESTNUT
     Dosage: 300 MG (ONE CAPLET) AFTER BREAKFAST
     Route: 048
     Dates: start: 20181228, end: 20181228
  6. TEMAZEPAM. [Concomitant]
     Active Substance: TEMAZEPAM
     Dosage: 15 MG, 1X/DAY (NIGHT)
     Route: 048
  7. ADVIL [Suspect]
     Active Substance: IBUPROFEN
     Dosage: 600 MG, UNK
     Route: 048
     Dates: start: 201811, end: 201811
  8. SYNTHROID [Concomitant]
     Active Substance: LEVOTHYROXINE SODIUM
     Dosage: 100 UG, DAILY (SATURDAY-SUNDAY)
     Route: 048

REACTIONS (15)
  - Dehydration [Unknown]
  - Blood urine [Unknown]
  - Balance disorder [Recovered/Resolved]
  - Pain [Recovered/Resolved]
  - Fall [Unknown]
  - Contusion [Recovering/Resolving]
  - Musculoskeletal stiffness [Recovered/Resolved]
  - Heart rate increased [Unknown]
  - Neoplasm progression [Unknown]
  - Platelet count decreased [Unknown]
  - Dizziness [Recovered/Resolved]
  - Joint swelling [Recovering/Resolving]
  - Pruritus [Recovered/Resolved]
  - Nausea [Recovered/Resolved]
  - Malaise [Unknown]

NARRATIVE: CASE EVENT DATE: 2018
